FAERS Safety Report 9600900 (Version 1)
Quarter: 2013Q4

REPORT INFORMATION
  Report Type: Spontaneous
  Country: US (occurrence: US)
  Receive Date: 20131004
  Receipt Date: 20131004
  Transmission Date: 20140711
  Serious: No
  Sender: FDA-Public Use
  Company Number: US-AMGEN-USASP2013037775

PATIENT
  Age: 61 Year
  Sex: Female
  Weight: 86.17 kg

DRUGS (9)
  1. ENBREL [Suspect]
     Indication: PRODUCT USED FOR UNKNOWN INDICATION
     Dosage: 50 MG/ML, QWK
     Route: 058
  2. METOPROLOL [Concomitant]
     Dosage: 25 MG, UNK
  3. METHOTREXATE [Concomitant]
     Dosage: UNK
  4. MOBIC [Concomitant]
     Dosage: UNK
  5. ZOCOR [Concomitant]
     Dosage: 10 MG, UNK
  6. HYDROCHLOROTHIAZIDE [Concomitant]
     Dosage: 25 MG, UNK
  7. FOLIC ACID [Concomitant]
     Dosage: 1 MG, UNK
  8. MEDROXYPROGESTERONE [Concomitant]
     Dosage: 2.5 MG, UNK
  9. ASPIRIN [Concomitant]
     Dosage: 81 MG, UNK

REACTIONS (1)
  - Drug effect decreased [Unknown]
